FAERS Safety Report 20596428 (Version 1)
Quarter: 2022Q1

REPORT INFORMATION
  Report Type: Report from Study
  Country: ES (occurrence: ES)
  Receive Date: 20220315
  Receipt Date: 20220315
  Transmission Date: 20220423
  Serious: Yes (Hospitalization)
  Sender: FDA-Public Use
  Company Number: ES-MYLANLABS-2022M1019554

PATIENT
  Sex: Male

DRUGS (3)
  1. LOPINAVIR\RITONAVIR [Interacting]
     Active Substance: LOPINAVIR\RITONAVIR
     Indication: COVID-19
     Dosage: UNK
     Route: 065
     Dates: start: 2020
  2. DULOXETINE [Interacting]
     Active Substance: DULOXETINE
     Indication: Product used for unknown indication
     Dosage: UNK
     Route: 065
  3. LITHIUM [Interacting]
     Active Substance: LITHIUM
     Indication: Product used for unknown indication
     Dosage: UNK
     Route: 065

REACTIONS (4)
  - Serotonin syndrome [Recovering/Resolving]
  - Drug interaction [Recovering/Resolving]
  - Off label use [Unknown]
  - Encephalopathy [Recovering/Resolving]

NARRATIVE: CASE EVENT DATE: 20200101
